FAERS Safety Report 18141855 (Version 2)
Quarter: 2020Q3

REPORT INFORMATION
  Report Type: Report from Study
  Country: US (occurrence: US)
  Receive Date: 20200812
  Receipt Date: 20200814
  Transmission Date: 20201103
  Serious: Yes (Hospitalization)
  Sender: FDA-Public Use
  Company Number: US-PFIZER INC-2020245336

PATIENT
  Age: 69 Year
  Sex: Male
  Weight: 83.4 kg

DRUGS (15)
  1. PF?05082566 [Suspect]
     Active Substance: UTOMILUMAB
     Dosage: 1 DF, CYCLIC (1 DOSAGE FORM, CYCLICAL; 100)
     Route: 042
     Dates: start: 20191118, end: 20191118
  2. PF?05082566 [Suspect]
     Active Substance: UTOMILUMAB
     Dosage: 1 DF, CYCLIC (1 DOSAGE FORM, CYCLICAL; 50)
     Route: 042
     Dates: start: 20200113, end: 20200113
  3. AXICABTAGENE CILOLEUCEL [Suspect]
     Active Substance: AXICABTAGENE CILOLEUCEL
     Indication: DIFFUSE LARGE B-CELL LYMPHOMA
     Dosage: 68 ML, SINGLE (ONCE)
     Route: 042
     Dates: start: 20190924, end: 20190924
  4. PF?05082566 [Suspect]
     Active Substance: UTOMILUMAB
     Indication: DIFFUSE LARGE B-CELL LYMPHOMA
     Dosage: 1 DF, CYCLIC (1 DOSAGE FORM, CYCLICAL; 100)
     Route: 042
     Dates: start: 20190925, end: 20190925
  5. FLUDARABINE PHOSPHATE. [Suspect]
     Active Substance: FLUDARABINE PHOSPHATE
     Indication: BONE MARROW CONDITIONING REGIMEN
     Dosage: 1 DF, DAILY (1 DOSAGE FORM, QD; 60)
     Route: 042
     Dates: start: 20190919, end: 20190921
  6. PF?05082566 [Suspect]
     Active Substance: UTOMILUMAB
     Dosage: 1 DF, DAILY (1 DOSAGE FORM, QD; 100)
     Route: 042
     Dates: start: 20191023, end: 20191023
  7. GLIPIZIDE. [Concomitant]
     Active Substance: GLIPIZIDE
     Dosage: UNK
     Dates: start: 20151123
  8. PF?05082566 [Suspect]
     Active Substance: UTOMILUMAB
     Dosage: 1 DF, CYCLIC (1 DOSAGE FORM, CYCLICAL; 100)
     Route: 042
     Dates: start: 20191219, end: 20191219
  9. PF?05082566 [Suspect]
     Active Substance: UTOMILUMAB
     Dosage: 1 DF, CYCLIC (1 DOSAGE FORM, CYCLICAL; 50)
     Route: 042
     Dates: start: 20200211, end: 20200211
  10. CYCLOPHOSPHAMIDE. [Suspect]
     Active Substance: CYCLOPHOSPHAMIDE
     Indication: BONE MARROW CONDITIONING REGIMEN
     Dosage: 1 DF, DAILY (1 DOSAGE FORM, QD; 1000)
     Route: 042
     Dates: start: 20190919, end: 20190921
  11. LISINOPRIL. [Concomitant]
     Active Substance: LISINOPRIL
     Dosage: UNK
     Dates: start: 20151123
  12. METFORMIN [Concomitant]
     Active Substance: METFORMIN HYDROCHLORIDE
     Dosage: UNK
     Dates: start: 20151123
  13. ASPIRIN [ACETYLSALICYLIC ACID] [Concomitant]
     Active Substance: ASPIRIN
     Dosage: UNK
     Dates: start: 20151130
  14. OXYCODONE [Concomitant]
     Active Substance: OXYCODONE
     Dosage: UNK
     Dates: start: 20151203
  15. GABAPENTIN. [Concomitant]
     Active Substance: GABAPENTIN
     Dosage: UNK
     Dates: start: 20190826

REACTIONS (2)
  - Pneumonia [Recovered/Resolved]
  - Chest pain [Recovered/Resolved]

NARRATIVE: CASE EVENT DATE: 20200417
